FAERS Safety Report 8803147 (Version 4)
Quarter: 2013Q3

REPORT INFORMATION
  Report Type: Spontaneous
  Country: NO (occurrence: NO)
  Receive Date: 20120924
  Receipt Date: 20130827
  Transmission Date: 20140515
  Serious: Yes (Other)
  Sender: FDA-Public Use
  Company Number: PHHY2012NO080390

PATIENT
  Age: 1 Year
  Sex: Female

DRUGS (3)
  1. VOTUBIA [Suspect]
     Indication: EPILEPSY
     Dosage: 2.5 MG, EVERY SECOND DAY
     Dates: start: 201205
  2. VOTUBIA [Suspect]
     Dosage: EVERY SECOND OR THIRD DAY
  3. SABRILEX [Concomitant]

REACTIONS (4)
  - Psychomotor retardation [Unknown]
  - Convulsion [Unknown]
  - Ear infection [Unknown]
  - Drug level increased [Recovered/Resolved]
